FAERS Safety Report 6772369-4 (Version None)
Quarter: 2010Q2

REPORT INFORMATION
  Report Type: 
  Country: None (occurrence: None)
  Receive Date: 20100616
  Receipt Date: 20091110
  Transmission Date: 20101027
  Serious: No
  Sender: FDA-Public Use
  Company Number: US-ASTRAZENECA-2009SE25798

PATIENT
  Age: 754 Month
  Sex: Male
  Weight: 72.6 kg

DRUGS (3)
  1. PULMICORT FLEXHALER [Suspect]
     Indication: ASTHMA
     Dosage: 360
     Route: 055
     Dates: start: 20081001
  2. SIMVASTATIN [Concomitant]
  3. FEXOFENADINE [Concomitant]

REACTIONS (1)
  - INVESTIGATION ABNORMAL [None]
